FAERS Safety Report 18596178 (Version 3)
Quarter: 2021Q1

REPORT INFORMATION
  Report Type: Report from Study
  Country: US (occurrence: US)
  Receive Date: 20201209
  Receipt Date: 20210128
  Transmission Date: 20210419
  Serious: No
  Sender: FDA-Public Use
  Company Number: NVSC2020US323840

PATIENT
  Age: 62 Year
  Sex: Male
  Weight: 99.7 kg

DRUGS (1)
  1. COSENTYX [Suspect]
     Active Substance: SECUKINUMAB
     Indication: PRODUCT USED FOR UNKNOWN INDICATION
     Dosage: 150 MG, OTHER (2 PENS MONTHLY)
     Route: 065
     Dates: start: 201910

REACTIONS (3)
  - Illness [Unknown]
  - Product dose omission issue [Unknown]
  - Sinus disorder [Unknown]

NARRATIVE: CASE EVENT DATE: 20201126
